FAERS Safety Report 24161049 (Version 1)
Quarter: 2024Q3

REPORT INFORMATION
  Report Type: Spontaneous
  Country: RU (occurrence: RU)
  Receive Date: 20240801
  Receipt Date: 20240801
  Transmission Date: 20241017
  Serious: Yes (Other)
  Sender: NOVARTIS
  Company Number: RU-002147023-NVSC2024RU155756

PATIENT
  Age: 17 Year
  Sex: Female
  Weight: 57 kg

DRUGS (3)
  1. TRILEPTAL [Suspect]
     Active Substance: OXCARBAZEPINE
     Indication: Epilepsy
     Dosage: 150 MG
     Route: 048
     Dates: start: 20240530, end: 20240612
  2. LATUDA [Concomitant]
     Active Substance: LURASIDONE HYDROCHLORIDE
     Indication: Behavioural therapy
     Dosage: 80 MG
     Route: 048
     Dates: start: 20240402
  3. THIORIDAZINE [Concomitant]
     Active Substance: THIORIDAZINE
     Indication: Affective disorder
     Dosage: 20 MG
     Route: 048
     Dates: start: 20240425

REACTIONS (1)
  - Dysuria [Recovered/Resolved]

NARRATIVE: CASE EVENT DATE: 20240610
